FAERS Safety Report 16424076 (Version 1)
Quarter: 2019Q2

REPORT INFORMATION
  Report Type: Spontaneous
  Country: CN (occurrence: CN)
  Receive Date: 20190613
  Receipt Date: 20190613
  Transmission Date: 20190711
  Serious: Yes (Hospitalization)
  Sender: FDA-Public Use
  Company Number: CN-ROCHE-2331594

PATIENT
  Age: 51 Year
  Sex: Female
  Weight: 52 kg

DRUGS (11)
  1. XELODA [Suspect]
     Active Substance: CAPECITABINE
     Route: 048
     Dates: start: 20190325, end: 20190413
  2. XELODA [Suspect]
     Active Substance: CAPECITABINE
     Route: 048
     Dates: start: 20190427
  3. OXALIPLATIN. [Concomitant]
     Active Substance: OXALIPLATIN
     Route: 065
     Dates: start: 20190412
  4. POLYENE PHOSPHATIDYLCHOLINE [Concomitant]
     Active Substance: PHOSPHOLIPID
     Route: 065
  5. MAGNESIUM ISOGLYCYRRHIZINATE [Concomitant]
     Active Substance: MAGNESIUM ISOGLYCYRRHIZINATE
     Indication: ADENOCARCINOMA OF COLON
     Route: 065
     Dates: start: 20190412
  6. OMEPRAZOLE SODIUM [Concomitant]
     Active Substance: OMEPRAZOLE SODIUM
     Indication: ADENOCARCINOMA OF COLON
     Route: 065
     Dates: start: 20190412
  7. OXALIPLATIN. [Concomitant]
     Active Substance: OXALIPLATIN
     Indication: ADENOCARCINOMA OF COLON
     Route: 065
     Dates: start: 20190227
  8. XELODA [Suspect]
     Active Substance: CAPECITABINE
     Indication: ADENOCARCINOMA OF COLON
     Route: 048
     Dates: start: 20190227
  9. METOPROLOL TARTRATE. [Concomitant]
     Active Substance: METOPROLOL TARTRATE
     Indication: VENTRICULAR ARRHYTHMIA
     Route: 048
     Dates: start: 20190325
  10. LENTINAN [Concomitant]
     Active Substance: LENTINAN
     Indication: ADENOCARCINOMA OF COLON
     Route: 065
     Dates: start: 20190412
  11. DOLASETRON MESYLATE [Concomitant]
     Active Substance: DOLASETRON MESYLATE
     Indication: ADENOCARCINOMA OF COLON
     Route: 065
     Dates: start: 20190412

REACTIONS (4)
  - Drug-induced liver injury [Recovered/Resolved]
  - Decreased appetite [Unknown]
  - Palpitations [Unknown]
  - Asthenia [Unknown]

NARRATIVE: CASE EVENT DATE: 20190412
